FAERS Safety Report 10562558 (Version 1)
Quarter: 2014Q4

REPORT INFORMATION
  Report Type: Spontaneous
  Country: GB (occurrence: GB)
  Receive Date: 20141104
  Receipt Date: 20141104
  Transmission Date: 20150529
  Serious: Yes (Other)
  Sender: FDA-Public Use
  Company Number: GB-BAYER-2014-159351

PATIENT
  Age: 26 Year
  Sex: Female

DRUGS (1)
  1. BETAFERON [Suspect]
     Active Substance: INTERFERON BETA-1B
     Indication: MULTIPLE SCLEROSIS
     Dosage: UNK
     Route: 058
     Dates: start: 20070106

REACTIONS (19)
  - Clumsiness [None]
  - Muscular weakness [None]
  - Multiple sclerosis relapse [None]
  - Abdominal discomfort [None]
  - Micturition urgency [None]
  - Clumsiness [None]
  - Sensory disturbance [None]
  - Hypoaesthesia [None]
  - Gait disturbance [None]
  - Multiple sclerosis relapse [None]
  - Hypoaesthesia [None]
  - Athetosis [None]
  - Multiple sclerosis [None]
  - Hypertonia [None]
  - Decreased vibratory sense [None]
  - Agraphia [None]
  - Neutralising antibodies positive [None]
  - Multiple sclerosis relapse [None]
  - Myelitis [None]

NARRATIVE: CASE EVENT DATE: 2007
